FAERS Safety Report 17795204 (Version 2)
Quarter: 2020Q2

REPORT INFORMATION
  Report Type: Report from Study
  Country: US (occurrence: US)
  Receive Date: 20200515
  Receipt Date: 20200528
  Transmission Date: 20200714
  Serious: Yes (Death, Hospitalization, Other)
  Sender: FDA-Public Use
  Company Number: US-ACTELION-A-NJ2019-199083

PATIENT
  Age: 50 Year
  Sex: Female
  Weight: 99.77 kg

DRUGS (7)
  1. TORSEMIDE. [Concomitant]
     Active Substance: TORSEMIDE
     Dosage: 40 MG, QD
     Dates: start: 201911, end: 20200503
  2. PLAQUENIL [Concomitant]
     Active Substance: HYDROXYCHLOROQUINE SULFATE
     Dosage: 200 MG, QD
     Dates: start: 201710, end: 20200503
  3. UPTRAVI [Concomitant]
     Active Substance: SELEXIPAG
     Indication: PULMONARY HYPERTENSION
     Dosage: 1000 MCG, BID
     Route: 048
     Dates: start: 201910, end: 20200503
  4. SILDENAFIL CITRATE. [Concomitant]
     Active Substance: SILDENAFIL CITRATE
     Dosage: 20 MG, TID
     Dates: start: 201710, end: 20200503
  5. PROTONIX [Concomitant]
     Active Substance: PANTOPRAZOLE SODIUM
     Dosage: 40 MG, QD
  6. OPSUMIT [Suspect]
     Active Substance: MACITENTAN
     Indication: PULMONARY HYPERTENSION
     Dosage: 10 MG, QD
     Route: 048
     Dates: start: 201809, end: 20200503
  7. DIGOXIN. [Concomitant]
     Active Substance: DIGOXIN
     Dosage: 0.125 MG, QD

REACTIONS (20)
  - Fluid overload [Recovering/Resolving]
  - Cardiac failure [Unknown]
  - Pulseless electrical activity [Not Recovered/Not Resolved]
  - Chest pain [Unknown]
  - Dyspnoea [Recovering/Resolving]
  - Cor pulmonale chronic [Recovering/Resolving]
  - Cardiac arrest [Fatal]
  - Congestive hepatopathy [Recovering/Resolving]
  - Swelling [Recovering/Resolving]
  - Bradycardia [Not Recovered/Not Resolved]
  - Acute respiratory failure [Recovering/Resolving]
  - Hypoxia [Recovering/Resolving]
  - Pulmonary arterial hypertension [Recovering/Resolving]
  - Breast pain [Unknown]
  - Hypokalaemia [Recovering/Resolving]
  - Condition aggravated [Recovering/Resolving]
  - Ventricular extrasystoles [Not Recovered/Not Resolved]
  - Asthenia [Unknown]
  - Unresponsive to stimuli [Not Recovered/Not Resolved]
  - Back pain [Unknown]

NARRATIVE: CASE EVENT DATE: 20191115
